FAERS Safety Report 17916934 (Version 1)
Quarter: 2020Q2

REPORT INFORMATION
  Report Type: Spontaneous
  Country: BD (occurrence: BD)
  Receive Date: 20200619
  Receipt Date: 20200619
  Transmission Date: 20200714
  Serious: No
  Sender: FDA-Public Use
  Company Number: None

PATIENT
  Age: 40 Year
  Sex: Female
  Weight: 75 kg

DRUGS (1)
  1. GACOZEMA RING WORM AND ECZEMA OINTMENT [Suspect]
     Active Substance: ANTHRALIN\BORIC ACID\SALICYLIC ACID
     Indication: TINEA INFECTION
     Dates: start: 20200612, end: 20200613

REACTIONS (4)
  - Pruritus [None]
  - Skin burning sensation [None]
  - Extra dose administered [None]
  - Skin irritation [None]
